FAERS Safety Report 7458073-8 (Version None)
Quarter: 2011Q2

REPORT INFORMATION
  Report Type: 
  Country: None (occurrence: None)
  Receive Date: 20110504
  Receipt Date: 20110225
  Transmission Date: 20111010
  Serious: Yes (Hospitalization)
  Sender: FDA-Public Use
  Company Number: US-SANOFI-AVENTIS-2011SA012741

PATIENT
  Age: 41 Year
  Sex: Female

DRUGS (1)
  1. APIDRA [Suspect]
     Dosage: UP TO 100 UNITS DAILY VIA PUMP
     Route: 065

REACTIONS (2)
  - BLOOD GLUCOSE INCREASED [None]
  - PRODUCT QUALITY ISSUE [None]
